FAERS Safety Report 13981779 (Version 1)
Quarter: 2017Q3

REPORT INFORMATION
  Report Type: Spontaneous
  Country: DE (occurrence: DE)
  Receive Date: 20170918
  Receipt Date: 20170918
  Transmission Date: 20171128
  Serious: Yes (Hospitalization)
  Sender: FDA-Public Use
  Company Number: DE-SUN PHARMACEUTICAL INDUSTRIES LTD-2017RR-149801

PATIENT
  Age: 57 Year
  Sex: Female

DRUGS (21)
  1. ABILIFY [Interacting]
     Active Substance: ARIPIPRAZOLE
     Indication: PRODUCT USED FOR UNKNOWN INDICATION
     Dosage: 10 MG, DAILY
     Route: 065
     Dates: start: 20160705, end: 20161128
  2. SEROQUEL PROLOG [Concomitant]
     Dosage: 75 MG, DAILY
     Route: 065
     Dates: start: 20170119, end: 20170202
  3. FLUOXETINE [Interacting]
     Active Substance: FLUOXETINE HYDROCHLORIDE
     Dosage: 30 MG, DAILY
     Route: 065
     Dates: start: 20161219, end: 20170102
  4. SEROQUEL PROLOG [Concomitant]
     Indication: PRODUCT USED FOR UNKNOWN INDICATION
     Dosage: 25 MG, DAILY
     Route: 065
     Dates: start: 20170104, end: 20170112
  5. SEROQUEL PROLOG [Concomitant]
     Dosage: 125 MG, DAILY
     Route: 065
     Dates: start: 20170206, end: 20170220
  6. SERTRALIN STADA [Concomitant]
     Active Substance: SERTRALINE HYDROCHLORIDE
     Dosage: 100 MG, DAILY
     Route: 065
     Dates: start: 20170203
  7. AKINETON [Concomitant]
     Active Substance: BIPERIDEN HYDROCHLORIDE
     Dosage: 2 UNK, UNK
     Route: 065
     Dates: start: 20170118, end: 20170207
  8. SERTRALIN STADA [Concomitant]
     Active Substance: SERTRALINE HYDROCHLORIDE
     Dosage: 50 MG, DAILY
     Route: 065
     Dates: start: 20170113, end: 20170118
  9. RISENDRONAT AL [Concomitant]
     Indication: PRODUCT USED FOR UNKNOWN INDICATION
     Dosage: 35 MG, DAILY
     Route: 065
  10. SEROQUEL PROLOG [Concomitant]
     Dosage: 50 MG, DAILY
     Route: 065
     Dates: start: 20170113, end: 20170118
  11. DEKRISTOL [Concomitant]
     Active Substance: CHOLECALCIFEROL
     Indication: PRODUCT USED FOR UNKNOWN INDICATION
     Dosage: 20000 IU, DAILY
     Route: 065
  12. ABILIFY [Interacting]
     Active Substance: ARIPIPRAZOLE
     Dosage: 20 MG, DAILY
     Route: 065
     Dates: start: 20161129, end: 20161212
  13. ABILIFY [Interacting]
     Active Substance: ARIPIPRAZOLE
     Dosage: 5 MG, DAILY
     Route: 065
     Dates: start: 20161225, end: 20170112
  14. SEROQUEL PROLOG [Concomitant]
     Dosage: 100 MG, DAILY
     Dates: start: 20170203, end: 20170205
  15. SERTRALIN STADA [Concomitant]
     Active Substance: SERTRALINE HYDROCHLORIDE
     Indication: PRODUCT USED FOR UNKNOWN INDICATION
     Dosage: 25 MG, DAILY
     Route: 065
     Dates: start: 20170104, end: 20170112
  16. SERTRALIN STADA [Concomitant]
     Active Substance: SERTRALINE HYDROCHLORIDE
     Dosage: 75 MG, DAILY
     Route: 065
     Dates: start: 20170119, end: 20170202
  17. FLUOXETINE [Suspect]
     Active Substance: FLUOXETINE HYDROCHLORIDE
     Indication: PRODUCT USED FOR UNKNOWN INDICATION
     Dosage: 20 MG, DAILY
     Route: 065
     Dates: start: 20161213, end: 20161218
  18. TREVILOR RETARD [Concomitant]
     Active Substance: VENLAFAXINE HYDROCHLORIDE
     Indication: PRODUCT USED FOR UNKNOWN INDICATION
     Dosage: UNK
     Route: 065
     Dates: start: 201607
  19. SEROQUEL PROLOG [Concomitant]
     Dosage: 150 MG, DAILY
     Dates: start: 20170221
  20. ABILIFY [Interacting]
     Active Substance: ARIPIPRAZOLE
     Dosage: 10 MG, DAILY
     Route: 065
     Dates: start: 20161213, end: 20161224
  21. AKINETON [Concomitant]
     Active Substance: BIPERIDEN HYDROCHLORIDE
     Indication: PRODUCT USED FOR UNKNOWN INDICATION
     Dosage: 4 MG, DAILY
     Route: 065
     Dates: start: 20161224, end: 20170117

REACTIONS (4)
  - Parkinsonian gait [Recovered/Resolved]
  - Cogwheel rigidity [Recovered/Resolved]
  - Hypokinesia [Recovered/Resolved]
  - Reduced facial expression [Recovered/Resolved]

NARRATIVE: CASE EVENT DATE: 20161205
